FAERS Safety Report 25216382 (Version 1)
Quarter: 2025Q2

REPORT INFORMATION
  Report Type: Spontaneous
  Country: RU (occurrence: RU)
  Receive Date: 20250418
  Receipt Date: 20250418
  Transmission Date: 20250717
  Serious: Yes (Other)
  Sender: ROCHE
  Company Number: RU-ROCHE-10000255112

PATIENT

DRUGS (4)
  1. ATEZOLIZUMAB [Suspect]
     Active Substance: ATEZOLIZUMAB
     Indication: Lung carcinoma cell type unspecified stage IV
     Route: 065
     Dates: start: 20230824, end: 20241027
  2. ATEZOLIZUMAB [Suspect]
     Active Substance: ATEZOLIZUMAB
     Route: 065
     Dates: start: 20231113
  3. ETOPOSIDE [Suspect]
     Active Substance: ETOPOSIDE
     Indication: Lung carcinoma cell type unspecified stage IV
     Route: 065
     Dates: start: 20230824, end: 20241027
  4. CISPLATIN [Suspect]
     Active Substance: CISPLATIN
     Indication: Lung carcinoma cell type unspecified stage IV
     Route: 065
     Dates: start: 20230824, end: 20241027

REACTIONS (8)
  - Emphysema [Unknown]
  - Pulmonary fibrosis [Unknown]
  - Haemangioma of liver [Unknown]
  - Hyperplasia adrenal [Unknown]
  - Vascular encephalopathy [Unknown]
  - Cerebral atrophy [Unknown]
  - Metastases to lymph nodes [Unknown]
  - Metastases to lung [Unknown]
